FAERS Safety Report 14267868 (Version 2)
Quarter: 2017Q4

REPORT INFORMATION
  Report Type: Report from Study
  Country: TR (occurrence: TR)
  Receive Date: 20171211
  Receipt Date: 20171211
  Transmission Date: 20180321
  Serious: Yes (Hospitalization)
  Sender: FDA-Public Use
  Company Number: TR-EMD SERONO-8207042

PATIENT
  Age: 64 Year
  Sex: Male
  Weight: 91 kg

DRUGS (2)
  1. AVELUMAB [Suspect]
     Active Substance: AVELUMAB
     Indication: NON-SMALL CELL LUNG CANCER
     Dates: start: 20171121, end: 20171121
  2. AVELUMAB [Suspect]
     Active Substance: AVELUMAB

REACTIONS (1)
  - Diarrhoea [Recovered/Resolved]

NARRATIVE: CASE EVENT DATE: 20171126
